FAERS Safety Report 6818880-9 (Version None)
Quarter: 2010Q3

REPORT INFORMATION
  Report Type: 
  Country: None (occurrence: None)
  Receive Date: 20100707
  Receipt Date: 20100302
  Transmission Date: 20110219
  Serious: Yes (Death)
  Sender: FDA-Public Use
  Company Number: US-ASTRAZENECA-2009SE16731

PATIENT
  Sex: Female

DRUGS (9)
  1. SEROQUEL [Suspect]
     Dosage: 400 MG- 600 MG
     Route: 048
     Dates: start: 20040206, end: 20050105
  2. ZESTRIL [Concomitant]
     Indication: BLOOD PRESSURE
  3. METFORMIN HCL [Concomitant]
     Dates: start: 20040507
  4. LIPITOR [Concomitant]
  5. SYNTHROID [Concomitant]
     Dates: start: 20041215
  6. IMIPRAMINE [Concomitant]
     Dosage: 50 MG 1 QAM 3 HS
     Dates: start: 20050105
  7. GEODON [Concomitant]
     Dates: start: 20050105
  8. LEXAPRO [Concomitant]
     Dates: start: 20050105
  9. TRAZODONE HYDROCHLORIDE [Concomitant]
     Indication: INSOMNIA
     Dates: start: 20050105

REACTIONS (2)
  - DEATH [None]
  - TYPE 2 DIABETES MELLITUS [None]
